FAERS Safety Report 22094727 (Version 1)
Quarter: 2023Q1

REPORT INFORMATION
  Report Type: Spontaneous
  Country: GB (occurrence: GB)
  Receive Date: 20230314
  Receipt Date: 20230314
  Transmission Date: 20230417
  Serious: Yes (Other)
  Sender: FDA-Public Use
  Company Number: None

PATIENT
  Age: 93 Year
  Sex: Female
  Weight: 71 kg

DRUGS (11)
  1. CLARITHROMYCIN [Suspect]
     Active Substance: CLARITHROMYCIN
     Indication: Product used for unknown indication
     Dosage: 1000 MILLIGRAM DAILY; UNIT DOSE: 500MG, FREQUENCY: ONCE EVERY 12 HOURS, DURATION: 7 DAYS
     Route: 065
     Dates: start: 20230220
  2. AMOXICILLIN [Concomitant]
     Active Substance: AMOXICILLIN
     Indication: Product used for unknown indication
     Dosage: 3 DOSAGE FORMS DAILY; UNIT DOSE: 1DF, FREQUENCY: THRICE DAILY
     Dates: start: 20230220
  3. BETAMETHASONE VALERATE [Concomitant]
     Active Substance: BETAMETHASONE VALERATE
     Indication: Product used for unknown indication
     Dosage: APPLY THINLY TO THE AFFECTED AREA(S) ONCE TWICE, DURATION: 7 DAYS
     Dates: start: 20230116, end: 20230123
  4. CYCLIZINE [Concomitant]
     Active Substance: CYCLIZINE
     Indication: Nausea
     Dosage: UP TO THREE TIMES A DAY, UNIT DOSE: 1DF
     Dates: start: 20160303
  5. FENBID [Concomitant]
     Indication: Product used for unknown indication
     Dosage: 3 DOSAGE FORMS DAILY; UNIT DOSE: 1DF, FREQUENCY: THRICE DAILY
     Dates: start: 20230215
  6. FLUCLOXACILLIN [Concomitant]
     Active Substance: FLUCLOXACILLIN
     Indication: Product used for unknown indication
     Dosage: 4 DOSAGE FORMS DAILY; TAKE ONE 4 TIMES/DAY, DURATION: 1 DAYS
     Dates: start: 20230215, end: 20230215
  7. IBUPROFEN [Concomitant]
     Active Substance: IBUPROFEN
     Indication: Product used for unknown indication
     Dosage: 3 DOSAGE FORMS DAILY; UNIT DOSE: 1DF, FREQUENCY: THRICE DAILY, DURATION: 1 DAYS
     Dates: start: 20230215, end: 20230215
  8. LERCANIDIPINE HYDROCHLORIDE [Concomitant]
     Active Substance: LERCANIDIPINE HYDROCHLORIDE
     Indication: Product used for unknown indication
     Dosage: 1 DOSAGE FORMS DAILY; UNIT DOSE: 1DF, FREQUENCY: ONCE DAILY
     Dates: start: 20220803
  9. TRAMADOL [Concomitant]
     Active Substance: TRAMADOL
     Indication: Product used for unknown indication
     Dosage: 4 DOSAGE FORMS DAILY; 2 IN THE MORNING AND 2 IN THE EVENING WHEN REQU
     Dates: start: 20180219
  10. TRELEGY ELLIPTA [Concomitant]
     Active Substance: FLUTICASONE FUROATE\UMECLIDINIUM BROMIDE\VILANTEROL TRIFENATATE
     Indication: Product used for unknown indication
     Dosage: 1 DOSAGE FORMS DAILY; UNIT DOSE: 1DF, FREQUENCY: ONCE DAILY
     Route: 055
     Dates: start: 20190823
  11. VENTOLIN [Concomitant]
     Active Substance: ALBUTEROL SULFATE
     Indication: Product used for unknown indication
     Dosage: 1 OR 2 PUFFS AS REQUIRED MAX 8 PUFFS PER DAY
     Route: 055
     Dates: start: 20220104

REACTIONS (2)
  - Dyspnoea [Recovered/Resolved]
  - Wheezing [Recovered/Resolved]

NARRATIVE: CASE EVENT DATE: 20230222
